FAERS Safety Report 10089783 (Version 1)
Quarter: 2014Q2

REPORT INFORMATION
  Report Type: Spontaneous
  Country: IT (occurrence: IT)
  Receive Date: 20140421
  Receipt Date: 20140421
  Transmission Date: 20141212
  Serious: Yes (Death)
  Sender: FDA-Public Use
  Company Number: IT-WATSON-2014-07430

PATIENT
  Age: 26 Year
  Sex: Male

DRUGS (1)
  1. LIDOCAINE (UNKNOWN) [Suspect]
     Indication: DRUG ABUSE
     Dosage: UNK, SINGLE
     Route: 042

REACTIONS (5)
  - Cardiac failure [Fatal]
  - Pulmonary oedema [Fatal]
  - Visceral congestion [Fatal]
  - Drug abuse [Fatal]
  - Overdose [Fatal]
